FAERS Safety Report 8617348 (Version 4)
Quarter: 2013Q1

REPORT INFORMATION
  Report Type: Report from Study
  Country: CZ (occurrence: CZ)
  Receive Date: 20120615
  Receipt Date: 20130211
  Transmission Date: 20140127
  Serious: Yes (Hospitalization)
  Sender: FDA-Public Use
  Company Number: CZ-ASTRAZENECA-2012SE38934

PATIENT
  Age: 24500 Day
  Sex: Male

DRUGS (15)
  1. AZD6140 [Suspect]
     Indication: CORONARY ARTERY DISEASE
     Route: 048
     Dates: start: 20111219, end: 20120117
  2. AZD6140 [Suspect]
     Indication: CORONARY ARTERY DISEASE
     Route: 048
     Dates: start: 20120131, end: 20120528
  3. AZD6140 [Suspect]
     Indication: CORONARY ARTERY DISEASE
     Route: 048
     Dates: start: 20120816
  4. ANOPYRIN [Suspect]
     Route: 048
     Dates: end: 20120118
  5. ANOPYRIN [Suspect]
     Route: 048
     Dates: start: 20120131, end: 20120529
  6. ANOPYRIN [Suspect]
     Route: 048
     Dates: start: 20120815
  7. SORTIS [Concomitant]
     Indication: DYSLIPIDAEMIA
     Route: 048
  8. OMNIC TOPAS [Concomitant]
     Indication: BENIGN PROSTATIC HYPERPLASIA
     Route: 048
  9. PRESTANCE 5/5 [Concomitant]
     Indication: HYPERTENSION
     Route: 048
  10. LAGOSA [Concomitant]
     Indication: DRUG-INDUCED LIVER INJURY
     Route: 048
     Dates: end: 20120605
  11. ESSENTIALE FORTE [Concomitant]
     Indication: DRUG-INDUCED LIVER INJURY
     Route: 048
     Dates: end: 20120605
  12. PREDUCTAL MR [Concomitant]
     Indication: MYOCARDIAL ISCHAEMIA
     Route: 048
  13. BETALOC SR [Concomitant]
     Indication: MYOCARDIAL ISCHAEMIA
     Route: 048
  14. AKTIFERRIN [Concomitant]
     Indication: ANAEMIA
     Dates: start: 20120529
  15. FRAXIPARINE [Concomitant]
     Indication: MYOCARDIAL ISCHAEMIA
     Route: 058
     Dates: start: 20120529, end: 20120814

REACTIONS (1)
  - Duodenal ulcer haemorrhage [Recovered/Resolved]
